FAERS Safety Report 5360273-8 (Version None)
Quarter: 2007Q2

REPORT INFORMATION
  Report Type: 
  Country: None (occurrence: None)
  Receive Date: 20070614
  Receipt Date: 20070606
  Transmission Date: 20071010
  Serious: Yes (Other)
  Sender: FDA-Public Use
  Company Number: S07-USA-02466-01

PATIENT
  Age: 45 Year
  Sex: Male

DRUGS (1)
  1. LEXAPRO [Suspect]
     Indication: ANXIETY DISORDER
     Dosage: 10 MG QD PO
     Route: 048
     Dates: start: 20070501, end: 20070501

REACTIONS (2)
  - ABNORMAL DREAMS [None]
  - HOMICIDAL IDEATION [None]
